FAERS Safety Report 7136037-1 (Version None)
Quarter: 2010Q4

REPORT INFORMATION
  Report Type: 
  Country: None (occurrence: None)
  Receive Date: 20101204
  Receipt Date: 20100820
  Transmission Date: 20110411
  Serious: Yes (Hospitalization, Other)
  Sender: FDA-Public Use
  Company Number: US-BAYER-200942654NA

PATIENT

DRUGS (4)
  1. YASMIN [Suspect]
     Indication: CONTRACEPTION
     Route: 048
     Dates: start: 20030706, end: 20080306
  2. ZYRTEC [Concomitant]
     Dosage: PHARMACY RECORDS: FILLED ON FEB-2003 AND APR-2003
     Route: 065
  3. AMOXICILLIN [Concomitant]
     Dosage: PHARMACY RECORDS: FILLED IN FEB-2003
     Route: 065
  4. LINDANE [Concomitant]
     Dosage: 1 %, PHARMACY RECORDS: FILLED ON 28-APR-2004
     Route: 065

REACTIONS (2)
  - CHOLECYSTITIS CHRONIC [None]
  - CHOLELITHIASIS [None]
